FAERS Safety Report 7086036-3 (Version None)
Quarter: 2010Q4

REPORT INFORMATION
  Report Type: 
  Country: None (occurrence: None)
  Receive Date: 20101105
  Receipt Date: 20101026
  Transmission Date: 20110411
  Serious: Yes (Death, Congenital Anomaly)
  Sender: FDA-Public Use
  Company Number: A0881448A

PATIENT

DRUGS (3)
  1. EPZICOM [Suspect]
     Indication: HIV INFECTION
     Dosage: 1TAB PER DAY
  2. INTELENCE [Suspect]
     Indication: HIV INFECTION
     Dosage: 400MG PER DAY
  3. ISENTRESS [Suspect]
     Indication: HIV INFECTION
     Dosage: 800MG PER DAY

REACTIONS (3)
  - CONGENITAL PYELOCALIECTASIS [None]
  - DRUG EXPOSURE DURING PREGNANCY [None]
  - INTRA-UTERINE DEATH [None]
